FAERS Safety Report 22626195 (Version 1)
Quarter: 2023Q2

REPORT INFORMATION
  Report Type: Spontaneous
  Country: JP (occurrence: JP)
  Receive Date: 20230621
  Receipt Date: 20230621
  Transmission Date: 20230722
  Serious: Yes (Other)
  Sender: FDA-Public Use
  Company Number: JP-SA-2023SA186801

PATIENT
  Age: 70 Year
  Sex: Male

DRUGS (2)
  1. CLOPIDOGREL BISULFATE [Suspect]
     Active Substance: CLOPIDOGREL BISULFATE
     Dosage: 75 MG
  2. ASPIRIN [Suspect]
     Active Substance: ASPIRIN
     Dosage: 100 MG

REACTIONS (2)
  - Eccentric fixation [Recovering/Resolving]
  - Hemiplegia [Recovering/Resolving]
